FAERS Safety Report 9527125 (Version 1)
Quarter: 2013Q3

REPORT INFORMATION
  Report Type: Spontaneous
  Country: CA (occurrence: CA)
  Receive Date: 20130916
  Receipt Date: 20130916
  Transmission Date: 20140515
  Serious: Yes (Hospitalization, Other)
  Sender: FDA-Public Use
  Company Number: CA-ROCHE-1275966

PATIENT
  Age: 55 Year
  Sex: Male

DRUGS (9)
  1. RITUXAN [Suspect]
     Indication: NON-HODGKIN^S LYMPHOMA
     Route: 042
     Dates: start: 201211
  2. CEPHALEX [Concomitant]
  3. HYDROMORPHONE [Concomitant]
  4. NYSTATIN [Concomitant]
  5. ENSURE [Concomitant]
  6. DEXAMETHASONE [Concomitant]
     Dosage: ONLY TO BE TAKEN AT CHEMO
     Route: 065
  7. ELTROXIN [Concomitant]
  8. LACTULOSE [Concomitant]
     Route: 065
  9. PREDNISONE [Concomitant]
     Route: 065

REACTIONS (2)
  - Hip arthroplasty [Unknown]
  - Fungal infection [Unknown]
